FAERS Safety Report 21620714 (Version 2)
Quarter: 2022Q4

REPORT INFORMATION
  Report Type: Spontaneous
  Country: JP (occurrence: JP)
  Receive Date: 20221121
  Receipt Date: 20221202
  Transmission Date: 20230113
  Serious: Yes (Other)
  Sender: FDA-Public Use
  Company Number: JP-CHUGAI-2022045455

PATIENT
  Age: 6 Decade
  Sex: Male

DRUGS (1)
  1. HEMLIBRA [Suspect]
     Active Substance: EMICIZUMAB-KXWH
     Indication: Haemophilia A without inhibitors
     Dosage: UNK
     Route: 058
     Dates: end: 2022

REACTIONS (1)
  - Muscle haemorrhage [Recovered/Resolved]

NARRATIVE: CASE EVENT DATE: 20220401
